FAERS Safety Report 6590790-4 (Version None)
Quarter: 2010Q1

REPORT INFORMATION
  Report Type: 
  Country: None (occurrence: None)
  Receive Date: 20100204
  Receipt Date: 20090901
  Transmission Date: 20100710
  Serious: Yes (Other)
  Sender: FDA-Public Use
  Company Number: 2009-00586

PATIENT
  Age: 74 Year
  Sex: Male

DRUGS (8)
  1. ZICAM ALLERGY RELIEF GEL SWABS [Suspect]
     Dosage: EVERY 4 TO 6 HRS/5 DAYS
     Dates: start: 20090827, end: 20090901
  2. AIRBORNE [Concomitant]
  3. AMLODIPINE [Concomitant]
  4. UNSPECIFIED PRESCRIPTION MEDICATION [Concomitant]
  5. ZOCOR [Concomitant]
  6. CENTRUM SILVER MULTIVITAMIN/MINERAL SUPPLEMENT [Concomitant]
  7. FISH OIL [Concomitant]
  8. VITAMIN C [Concomitant]

REACTIONS (1)
  - AGEUSIA [None]
